FAERS Safety Report 24583292 (Version 2)
Quarter: 2025Q2

REPORT INFORMATION
  Report Type: Report from Study
  Country: CZ (occurrence: CZ)
  Receive Date: 20241106
  Receipt Date: 20250505
  Transmission Date: 20250717
  Serious: Yes (Death, Hospitalization, Other)
  Sender: ABBVIE
  Company Number: CZ-ABBVIE-5986929

PATIENT
  Age: 31 Year
  Sex: Female

DRUGS (4)
  1. SKYRIZI [Suspect]
     Active Substance: RISANKIZUMAB-RZAA
     Indication: Psoriasis
     Route: 058
     Dates: start: 20221205, end: 20240812
  2. BRIVIACT [Concomitant]
     Active Substance: BRIVARACETAM
     Indication: Product used for unknown indication
  3. SERTRALINE HYDROCHLORIDE [Concomitant]
     Active Substance: SERTRALINE HYDROCHLORIDE
     Indication: Product used for unknown indication
  4. RIVOTRIL [Concomitant]
     Active Substance: CLONAZEPAM
     Indication: Product used for unknown indication

REACTIONS (11)
  - Death [Fatal]
  - Astrocytoma, low grade [Unknown]
  - Abscess neck [Unknown]
  - Pancytopenia [Unknown]
  - Radiotherapy to brain [Unknown]
  - Astrocytoma, low grade [Unknown]
  - Astrocytoma, low grade [Unknown]
  - Thrombocytopenia [Unknown]
  - Epiglottic abscess [Unknown]
  - Staphylococcal infection [Unknown]
  - Bacteriuria [Unknown]

NARRATIVE: CASE EVENT DATE: 20230831
